FAERS Safety Report 5970995-3 (Version None)
Quarter: 2008Q4

REPORT INFORMATION
  Report Type: 
  Country: None (occurrence: None)
  Receive Date: 20081128
  Receipt Date: 20081124
  Transmission Date: 20090506
  Serious: Yes (Life-Threatening, Hospitalization, Other)
  Sender: FDA-Public Use
  Company Number: PHHY2008DE27907

PATIENT
  Age: 50 Year
  Sex: Female

DRUGS (2)
  1. LEPONEX [Suspect]
     Indication: SCHIZOAFFECTIVE DISORDER
     Dosage: 200 MG DAILY
     Route: 048
     Dates: start: 20061101, end: 20081109
  2. ASPIRIN [Concomitant]
     Dosage: 100

REACTIONS (8)
  - AGRANULOCYTOSIS [None]
  - FEMUR FRACTURE [None]
  - JOINT DISLOCATION [None]
  - LEUKOPENIA [None]
  - LOWER LIMB FRACTURE [None]
  - MOYAMOYA DISEASE [None]
  - NEUTROPHIL COUNT DECREASED [None]
  - WHITE BLOOD CELL COUNT DECREASED [None]
